FAERS Safety Report 6416980-9 (Version None)
Quarter: 2009Q4

REPORT INFORMATION
  Report Type: 
  Country: None (occurrence: None)
  Receive Date: 20091027
  Receipt Date: 20090820
  Transmission Date: 20100525
  Serious: No
  Sender: FDA-Public Use
  Company Number: US-ALLERGAN-0910629US

PATIENT
  Age: 86 Year
  Sex: Female
  Weight: 54.422 kg

DRUGS (4)
  1. ALPHAGAN P [Suspect]
     Indication: GLAUCOMA
     Dosage: 1 GTT, BID
     Route: 047
  2. COSOPT [Concomitant]
     Indication: GLAUCOMA
     Dosage: 2 GTT, BID
     Route: 047
  3. XALATAN [Concomitant]
     Indication: GLAUCOMA
     Dosage: 1 GTT, UNK
  4. SYNTHROID [Concomitant]

REACTIONS (3)
  - FATIGUE [None]
  - HYPOTENSION [None]
  - SUDDEN ONSET OF SLEEP [None]
